FAERS Safety Report 10502730 (Version 1)
Quarter: 2014Q4

REPORT INFORMATION
  Report Type: Spontaneous
  Country: US (occurrence: None)
  Receive Date: 20141003
  Receipt Date: 20141003
  Transmission Date: 20150528
  Serious: Yes (Other)
  Sender: FDA-Public Use
  Company Number: COR_00080_2014

PATIENT
  Age: 73 Year
  Sex: Male

DRUGS (3)
  1. ETOPOSIDE. [Suspect]
     Active Substance: ETOPOSIDE
     Indication: SMALL CELL LUNG CANCER
     Dosage: [DAYS 1-3 OF A 28 DAY CYCLE] INTRAVENOUS (NOT OTHERWISE SPECIFIED)
     Route: 042
  2. CISPLATIN. [Suspect]
     Active Substance: CISPLATIN
     Indication: SMALL CELL LUNG CANCER
     Dosage: DAYS 1-3 OF A 28 DAY CYCLE. (NOT OTHERWISE SPECIFIED)
     Route: 042
  3. RADIOTHERAPY [Suspect]
     Active Substance: RADIATION THERAPY
     Indication: SMALL CELL LUNG CANCER
     Dosage: ([45/30 GY/FR])

REACTIONS (5)
  - Bone marrow failure [None]
  - Haematotoxicity [None]
  - Leukopenia [None]
  - Performance status decreased [None]
  - Febrile neutropenia [None]
